FAERS Safety Report 25710570 (Version 1)
Quarter: 2025Q3

REPORT INFORMATION
  Report Type: Spontaneous
  Country: EU (occurrence: EU)
  Receive Date: 20250821
  Receipt Date: 20250821
  Transmission Date: 20251020
  Serious: Yes (Hospitalization, Other)
  Sender: SANOFI AVENTIS
  Company Number: None

PATIENT
  Age: 78 Year
  Sex: Female
  Weight: 88.9 kg

DRUGS (17)
  1. FLUINDIONE [Interacting]
     Active Substance: FLUINDIONE
     Indication: Atrial fibrillation
     Dosage: 1.5 DF, QD
     Route: 048
     Dates: start: 20140801, end: 20250122
  2. FLUINDIONE [Interacting]
     Active Substance: FLUINDIONE
     Indication: Carotid artery stenosis
  3. APIXABAN [Interacting]
     Active Substance: APIXABAN
     Indication: Atrial fibrillation
     Dosage: 1 DF, BID
     Route: 048
     Dates: start: 20250122, end: 20250124
  4. APIXABAN [Interacting]
     Active Substance: APIXABAN
     Indication: Carotid artery stenosis
  5. KARDEGIC [Interacting]
     Active Substance: ASPIRIN DL-LYSINE
     Indication: Carotid artery stenosis
     Dosage: 1 DF, QD
     Route: 048
     Dates: start: 20250107, end: 20250125
  6. KARDEGIC [Interacting]
     Active Substance: ASPIRIN DL-LYSINE
     Indication: Atrial fibrillation
  7. PLAVIX [Interacting]
     Active Substance: CLOPIDOGREL BISULFATE
     Indication: Atrial fibrillation
     Dosage: 1 DF, QD
     Route: 048
     Dates: start: 20250107, end: 20250125
  8. PLAVIX [Interacting]
     Active Substance: CLOPIDOGREL BISULFATE
     Indication: Carotid artery stenosis
  9. ENTRESTO [Concomitant]
     Active Substance: SACUBITRIL\VALSARTAN
     Indication: Atrial fibrillation
     Dosage: 1.000DF BID
     Route: 048
  10. BISOPROLOL FUMARATE [Concomitant]
     Active Substance: BISOPROLOL FUMARATE
     Indication: Atrial fibrillation
     Dosage: 1.000DF BID
     Route: 048
  11. FUROSEMIDE [Concomitant]
     Active Substance: FUROSEMIDE
     Indication: Atrial fibrillation
     Dosage: 40 MG, QD
     Route: 048
  12. POTASSIUM CHLORIDE [Concomitant]
     Active Substance: POTASSIUM CHLORIDE
     Indication: Hypokalaemia
     Dosage: 1.000DF Q8H
     Route: 048
     Dates: start: 20250107
  13. LIPTRUZET [Concomitant]
     Active Substance: ATORVASTATIN CALCIUM\EZETIMIBE
     Indication: Dyslipidaemia
     Dosage: 1.000DF QD
     Route: 048
     Dates: start: 20250122
  14. KEPPRA [Concomitant]
     Active Substance: LEVETIRACETAM
     Indication: Epilepsy
     Dosage: 1.000DF BID
     Route: 048
  15. METFORMIN PAMOATE [Concomitant]
     Active Substance: METFORMIN PAMOATE
     Indication: Type 2 diabetes mellitus
     Dosage: 1.000DF QD
     Route: 048
  16. PAROXETINE HYDROCHLORIDE [Concomitant]
     Active Substance: PAROXETINE HYDROCHLORIDE
     Indication: Mixed anxiety and depressive disorder
     Dosage: 2.000DF QD
     Route: 048
  17. MELATONIN [Concomitant]
     Active Substance: MELATONIN
     Indication: Insomnia
     Dosage: 1.000MG QD
     Route: 048

REACTIONS (2)
  - Subdural haematoma [Recovering/Resolving]
  - Drug interaction [Recovered/Resolved]

NARRATIVE: CASE EVENT DATE: 20250107
